FAERS Safety Report 9066430 (Version 1)
Quarter: 2013Q1

REPORT INFORMATION
  Report Type: Report from Study
  Country: US (occurrence: US)
  Receive Date: 20130131
  Receipt Date: 20130131
  Transmission Date: 20140127
  Serious: No
  Sender: FDA-Public Use
  Company Number: US-ABBOTT-12P-163-1007666-00

PATIENT
  Sex: Male

DRUGS (12)
  1. HUMIRA [Suspect]
     Indication: RHEUMATOID ARTHRITIS
     Route: 058
     Dates: start: 200907
  2. PRESTIQ [Concomitant]
     Indication: DEPRESSION
  3. LAMICTAL [Concomitant]
     Indication: EPILEPSY
  4. PROSCAR [Concomitant]
     Indication: BENIGN PROSTATIC HYPERPLASIA
  5. FLOMAX [Concomitant]
     Indication: PROSTATOMEGALY
  6. BABY ASPIRIN [Concomitant]
     Indication: CARDIAC DISORDER
  7. MULTIVITAMIN [Concomitant]
     Indication: PRODUCT USED FOR UNKNOWN INDICATION
  8. FISH OIL [Concomitant]
     Indication: PRODUCT USED FOR UNKNOWN INDICATION
  9. KLONOPIN [Concomitant]
     Indication: PANIC DISORDER
  10. DIOVAN [Concomitant]
     Indication: HYPERTENSION
  11. LIPITOR [Concomitant]
     Indication: BLOOD CHOLESTEROL INCREASED
  12. TYLENOL [Concomitant]
     Indication: PRODUCT USED FOR UNKNOWN INDICATION

REACTIONS (4)
  - Vision blurred [Recovering/Resolving]
  - Visual impairment [Recovering/Resolving]
  - Confusional state [Recovering/Resolving]
  - Gait disturbance [Recovering/Resolving]
